FAERS Safety Report 7138351-2 (Version None)
Quarter: 2010Q4

REPORT INFORMATION
  Report Type: 
  Country: None (occurrence: None)
  Receive Date: 20101118
  Receipt Date: 20101103
  Transmission Date: 20110411
  Serious: Yes (Hospitalization)
  Sender: FDA-Public Use
  Company Number: UTC-002160

PATIENT
  Age: 10 Year
  Sex: Female
  Weight: 26.8 kg

DRUGS (2)
  1. REMODULIN [Suspect]
     Indication: PULMONARY ARTERIAL HYPERTENSION
     Dosage: 59.04 UG/KG (0.041 UG/KG, 1 IN 1 MIN), INTRAVENOUS
     Route: 042
     Dates: start: 20100804
  2. REVATIO [Concomitant]

REACTIONS (1)
  - BODY TEMPERATURE INCREASED [None]
